FAERS Safety Report 8911970 (Version 8)
Quarter: 2016Q1

REPORT INFORMATION
  Report Type: Spontaneous
  Country: US (occurrence: US)
  Receive Date: 20121115
  Receipt Date: 20160322
  Transmission Date: 20160526
  Serious: Yes (Hospitalization, Disabling, Other)
  Sender: FDA-Public Use
  Company Number: US-009507513-1211USA003850

PATIENT
  Sex: Male
  Weight: 70.3 kg

DRUGS (13)
  1. HYDROCODONE BITARTRATE AND ACETAMINOPHEN [Concomitant]
     Active Substance: ACETAMINOPHEN\HYDROCODONE BITARTRATE
     Indication: PAIN
     Dosage: 5MG/500MG, 1-2 TABS BID
     Route: 048
     Dates: start: 20020422
  2. HYDROCHLOROTHIAZIDE. [Concomitant]
     Active Substance: HYDROCHLOROTHIAZIDE
     Indication: HYPERTENSION
     Dosage: 25 MG, QAM
     Route: 048
  3. TAMSULOSIN HYDROCHLORIDE. [Concomitant]
     Active Substance: TAMSULOSIN HYDROCHLORIDE
     Indication: BENIGN PROSTATIC HYPERPLASIA
     Dosage: 0.4 MG, TID
  4. PROPECIA [Suspect]
     Active Substance: FINASTERIDE
     Indication: ANDROGENETIC ALOPECIA
     Dosage: 1 MG, UNK
     Route: 048
     Dates: start: 20070928, end: 20091116
  5. MOBIC [Concomitant]
     Active Substance: MELOXICAM
     Indication: ARTHRITIS
     Dosage: UNK
     Dates: start: 20010726
  6. FLOMAX [Concomitant]
     Active Substance: TAMSULOSIN HYDROCHLORIDE
     Indication: BENIGN PROSTATIC HYPERPLASIA
     Dosage: 0.4 MG, TID
     Route: 048
  7. FLOMAX [Concomitant]
     Active Substance: TAMSULOSIN HYDROCHLORIDE
     Dosage: 0.4 MG, BID
     Route: 048
  8. LISINOPRIL. [Concomitant]
     Active Substance: LISINOPRIL
     Indication: HYPERTENSION
     Dosage: 10 MG, QD
     Route: 048
  9. SKELAXIN [Concomitant]
     Active Substance: METAXALONE
     Indication: PAIN
     Dosage: UNK
     Dates: start: 20020312
  10. AMBIEN [Concomitant]
     Active Substance: ZOLPIDEM TARTRATE
     Dosage: 12.5 MG, HS
     Dates: start: 2000
  11. FINASTERIDE. [Suspect]
     Active Substance: FINASTERIDE
     Indication: PROSTATOMEGALY
     Dosage: 5 MG, QD
     Route: 048
     Dates: start: 20100525, end: 20110721
  12. PROSCAR [Suspect]
     Active Substance: FINASTERIDE
     Indication: BENIGN PROSTATIC HYPERPLASIA
     Dosage: 5 MG, QD
     Route: 048
     Dates: start: 20100524
  13. METOPROLOL TARTRATE. [Concomitant]
     Active Substance: METOPROLOL TARTRATE
     Indication: HYPERTENSION
     Dosage: 25 MG, BID
     Route: 048

REACTIONS (47)
  - Neoplasm malignant [Not Recovered/Not Resolved]
  - Scrotal mass [Unknown]
  - Scrotal swelling [Unknown]
  - Heart rate irregular [Unknown]
  - Dyspepsia [Unknown]
  - Inguinal hernia repair [Unknown]
  - Therapeutic response decreased [Unknown]
  - Mass excision [Unknown]
  - Spermatic cord operation [Unknown]
  - Diarrhoea [Not Recovered/Not Resolved]
  - Lipoma [Unknown]
  - Excessive cerumen production [Unknown]
  - Scrotal exploration [Unknown]
  - Malignant neoplasm of spermatic cord [Unknown]
  - Testicular atrophy [Unknown]
  - Libido decreased [Unknown]
  - Arrhythmia [Unknown]
  - Treatment failure [Unknown]
  - Diabetes mellitus [Not Recovered/Not Resolved]
  - Genital disorder male [Unknown]
  - Asthenia [Unknown]
  - Food intolerance [Unknown]
  - Infected dermal cyst [Unknown]
  - Post-traumatic stress disorder [Not Recovered/Not Resolved]
  - Radiotherapy [Unknown]
  - Gastrooesophageal reflux disease [Unknown]
  - Erectile dysfunction [Unknown]
  - Gastric neoplasm [Unknown]
  - Organic erectile dysfunction [Not Recovered/Not Resolved]
  - Pyrexia [Unknown]
  - Anxiety [Unknown]
  - Arthralgia [Unknown]
  - Panic disorder [Unknown]
  - Dementia [Unknown]
  - Hydrocele [Unknown]
  - Benign prostatic hyperplasia [Unknown]
  - Orchidectomy [Unknown]
  - Weight decreased [Unknown]
  - Neuritis [Unknown]
  - Sexual dysfunction [Not Recovered/Not Resolved]
  - Drug ineffective [Unknown]
  - Cognitive disorder [Not Recovered/Not Resolved]
  - Insomnia [Unknown]
  - Inappropriate schedule of drug administration [Unknown]
  - Haematochezia [Unknown]
  - Inguinal hernia [Unknown]
  - Palpitations [Unknown]

NARRATIVE: CASE EVENT DATE: 2008
